FAERS Safety Report 9734301 (Version 2)
Quarter: 2013Q4

REPORT INFORMATION
  Report Type: Report from Study
  Country: ES (occurrence: ES)
  Receive Date: 20131205
  Receipt Date: 20131220
  Transmission Date: 20140711
  Serious: Yes (Hospitalization, Other)
  Sender: FDA-Public Use
  Company Number: ES-ROCHE-1312272

PATIENT
  Age: 64 Year
  Sex: Male

DRUGS (4)
  1. RANIBIZUMAB [Suspect]
     Indication: AGE-RELATED MACULAR DEGENERATION
     Dosage: DOSE: BLINDED, MOST RECENT DOSE PRIOR TO SAE WAS TAKEN ON 22/OCT/2013.
     Route: 050
     Dates: start: 20130925, end: 20131217
  2. ATACAND [Concomitant]
     Route: 065
     Dates: start: 20051123
  3. ZALDIAR [Concomitant]
     Route: 065
     Dates: start: 20131011
  4. HEPARINA [Concomitant]
     Route: 065
     Dates: start: 20131118

REACTIONS (1)
  - Thrombophlebitis [Recovering/Resolving]
